FAERS Safety Report 7120835-4 (Version None)
Quarter: 2010Q4

REPORT INFORMATION
  Report Type: 
  Country: None (occurrence: None)
  Receive Date: 20101124
  Receipt Date: 20091217
  Transmission Date: 20110411
  Serious: No
  Sender: FDA-Public Use
  Company Number: US-PFIZER INC-2009295800

PATIENT
  Sex: Male
  Weight: 86.168 kg

DRUGS (4)
  1. TIKOSYN [Suspect]
     Dosage: 500 UG, 2X/DAY
     Route: 048
     Dates: start: 20090324
  2. WARFARIN [Concomitant]
     Dosage: 4 MG, 1X/DAY
  3. FUROSEMIDE [Concomitant]
     Dosage: 40 MG, 2X/DAY
  4. KLOR-CON [Concomitant]
     Dosage: 20 MEQ, 1X/DAY

REACTIONS (1)
  - MUSCLE SPASMS [None]
